FAERS Safety Report 9350218 (Version 4)
Quarter: 2013Q3

REPORT INFORMATION
  Report Type: Spontaneous
  Country: US (occurrence: US)
  Receive Date: 20130617
  Receipt Date: 20130918
  Transmission Date: 20140515
  Serious: Yes (Other)
  Sender: FDA-Public Use
  Company Number: US-009507513-1306USA006266

PATIENT
  Age: 43 Year
  Sex: Male

DRUGS (2)
  1. VICTRELIS [Suspect]
     Indication: HEPATITIS C
     Dosage: 800 MG, TID
     Route: 048
     Dates: start: 201305, end: 201308
  2. VICTRELIS [Suspect]
     Dosage: 800 MG, TID
     Route: 048
     Dates: start: 20130416

REACTIONS (18)
  - Hypertension [Unknown]
  - Mental status changes [Unknown]
  - Depression [Unknown]
  - Family stress [Unknown]
  - Abnormal behaviour [Unknown]
  - Sleep disorder [Unknown]
  - Anger [Unknown]
  - Pain [Unknown]
  - Chest pain [Unknown]
  - Dyspnoea [Unknown]
  - Fatigue [Unknown]
  - Dysgeusia [Unknown]
  - Pain [Unknown]
  - Dyspnoea [Unknown]
  - Asthenia [Unknown]
  - Mood swings [Unknown]
  - Pollakiuria [Unknown]
  - Dysuria [Unknown]
